FAERS Safety Report 4453227-7 (Version None)
Quarter: 2004Q3

REPORT INFORMATION
  Report Type: 
  Country: None (occurrence: None)
  Receive Date: 20040901
  Receipt Date: 20040708
  Transmission Date: 20050211
  Serious: Yes (Other)
  Sender: FDA-Public Use
  Company Number: US080454

PATIENT
  Age: 45 Year
  Sex: Female

DRUGS (8)
  1. ENBREL [Suspect]
     Indication: RHEUMATOID ARTHRITIS
     Dosage: 2 IN 1 WEEKS, SC
     Route: 058
     Dates: start: 19991201, end: 20040401
  2. METHOTREXATE [Concomitant]
  3. HYDROXYCHLOROQUINE PHOSPHATE [Concomitant]
  4. INSULIN [Suspect]
  5. SERTRALINE HYDROCHLORIDE [Concomitant]
  6. LISINOPRIL [Concomitant]
  7. FOLIC ACID [Concomitant]
  8. CELECOXIB [Concomitant]

REACTIONS (1)
  - MULTIPLE SCLEROSIS [None]
